FAERS Safety Report 10903165 (Version 1)
Quarter: 2015Q1

REPORT INFORMATION
  Report Type: Spontaneous
  Country: FR (occurrence: FR)
  Receive Date: 20150311
  Receipt Date: 20150311
  Transmission Date: 20150721
  Serious: Yes (Hospitalization)
  Sender: FDA-Public Use
  Company Number: FR-ASTRAZENECA-2015SE21165

PATIENT
  Age: 32124 Day
  Sex: Male

DRUGS (5)
  1. ANTIPLATELET DRUG [Concomitant]
     Indication: ARRHYTHMIA
  2. CEFTRIAXONE. [Concomitant]
     Active Substance: CEFTRIAXONE
  3. INEXIUM [Suspect]
     Active Substance: ESOMEPRAZOLE
     Route: 048
     Dates: start: 20141226, end: 20150112
  4. FUNGIZONE [Concomitant]
     Active Substance: AMPHOTERICIN B
  5. FOLATES [Concomitant]

REACTIONS (1)
  - Neutropenia [Recovered/Resolved]

NARRATIVE: CASE EVENT DATE: 20150112
